FAERS Safety Report 10062287 (Version 1)
Quarter: 2014Q2

REPORT INFORMATION
  Report Type: Spontaneous
  Country: US (occurrence: US)
  Receive Date: 20140407
  Receipt Date: 20140407
  Transmission Date: 20141212
  Serious: No
  Sender: FDA-Public Use
  Company Number: US-GLAXOSMITHKLINE-A1053974A

PATIENT
  Sex: Female

DRUGS (1)
  1. BENLYSTA [Suspect]
     Indication: SYSTEMIC LUPUS ERYTHEMATOSUS
     Dosage: 120MG CYCLIC
     Route: 065
     Dates: start: 20131115

REACTIONS (7)
  - Anxiety [Not Recovered/Not Resolved]
  - Feeling abnormal [Recovering/Resolving]
  - Thinking abnormal [Unknown]
  - Liver disorder [Unknown]
  - Malaise [Recovering/Resolving]
  - Stomatitis [Recovering/Resolving]
  - Laboratory test abnormal [Unknown]
